APPROVED DRUG PRODUCT: CTEXLI
Active Ingredient: CHENODIOL
Strength: 250MG
Dosage Form/Route: TABLET;ORAL
Application: N219488 | Product #001
Applicant: MIRUM PHARMACEUTICALS INC
Approved: Feb 21, 2025 | RLD: Yes | RS: Yes | Type: RX

EXCLUSIVITY:
Code: NP | Date: Feb 21, 2028